FAERS Safety Report 12220034 (Version 1)
Quarter: 2016Q1

REPORT INFORMATION
  Report Type: Spontaneous
  Country: US (occurrence: US)
  Receive Date: 20160330
  Receipt Date: 20160330
  Transmission Date: 20160526
  Serious: Yes (Other)
  Sender: FDA-Public Use
  Company Number: US-ASTRAZENECA-2016SE33545

PATIENT
  Age: 27763 Day
  Sex: Female
  Weight: 59 kg

DRUGS (7)
  1. PLAVIX [Concomitant]
     Active Substance: CLOPIDOGREL BISULFATE
     Indication: CARDIAC DISORDER
     Dosage: DAILY
     Dates: start: 2006
  2. VITAMINS NOS [Concomitant]
     Active Substance: VITAMINS
  3. DALIRESP [Suspect]
     Active Substance: ROFLUMILAST
     Indication: CHRONIC OBSTRUCTIVE PULMONARY DISEASE
     Route: 048
     Dates: start: 20160309, end: 20160322
  4. SIMVASTATIN. [Concomitant]
     Active Substance: SIMVASTATIN
     Indication: CARDIAC DISORDER
     Dates: start: 2006
  5. PREDNISONE. [Concomitant]
     Active Substance: PREDNISONE
  6. THYROID [Concomitant]
     Active Substance: LEVOTHYROXINE\LIOTHYRONINE
     Dosage: DAILY
     Dates: start: 2006
  7. ADVAIR HFA [Concomitant]
     Active Substance: FLUTICASONE PROPIONATE\SALMETEROL XINAFOATE
     Indication: CHRONIC OBSTRUCTIVE PULMONARY DISEASE
     Dates: start: 2006

REACTIONS (14)
  - Lip disorder [Unknown]
  - Nausea [Unknown]
  - Diarrhoea [Recovered/Resolved]
  - Insomnia [Unknown]
  - Asthenia [Unknown]
  - Suicidal ideation [Unknown]
  - Headache [Unknown]
  - Tremor [Unknown]
  - Decreased appetite [Unknown]
  - Night sweats [Unknown]
  - Amnesia [Unknown]
  - Weight decreased [Unknown]
  - Eating disorder [Unknown]
  - Malaise [Unknown]

NARRATIVE: CASE EVENT DATE: 20160316
